FAERS Safety Report 26176559 (Version 1)
Quarter: 2025Q4

REPORT INFORMATION
  Report Type: Spontaneous
  Country: US (occurrence: US)
  Receive Date: 20251218
  Receipt Date: 20251218
  Transmission Date: 20260118
  Serious: Yes (Death, Hospitalization)
  Sender: ELI LILLY AND COMPANY
  Company Number: US-ELI_LILLY_AND_COMPANY-US202512019593

PATIENT
  Age: 78 Year
  Sex: Female

DRUGS (4)
  1. VERZENIO [Suspect]
     Active Substance: ABEMACICLIB
     Indication: Breast cancer
     Dosage: 50 MG, BID (ONCE IN THE MORNING AND AT NIGHT)
     Route: 048
     Dates: start: 20250825
  2. VERZENIO [Suspect]
     Active Substance: ABEMACICLIB
     Dosage: 100 MG, UNKNOWN
     Route: 048
  3. RALOXIFENE HYDROCHLORIDE [Suspect]
     Active Substance: RALOXIFENE HYDROCHLORIDE
     Indication: Breast cancer
     Dosage: UNK UNK, UNKNOWN
     Route: 065
     Dates: start: 20220116
  4. LETROZOLE [Concomitant]
     Active Substance: LETROZOLE
     Indication: Product used for unknown indication
     Dosage: UNK UNK, UNKNOWN
     Route: 065
     Dates: start: 20250424

REACTIONS (7)
  - Death [Fatal]
  - General physical health deterioration [Unknown]
  - Asthenia [Unknown]
  - Diarrhoea [Unknown]
  - Dysstasia [Unknown]
  - Anal incontinence [Unknown]
  - Drug ineffective [Unknown]

NARRATIVE: CASE EVENT DATE: 20251120
